FAERS Safety Report 9351571 (Version 3)
Quarter: 2013Q4

REPORT INFORMATION
  Report Type: Report from Study
  Country: AR (occurrence: AR)
  Receive Date: 20130617
  Receipt Date: 20131205
  Transmission Date: 20140711
  Serious: Yes (Hospitalization, Other)
  Sender: FDA-Public Use
  Company Number: PHHY2013AR061534

PATIENT
  Age: 75 Year
  Sex: Female

DRUGS (1)
  1. EXFORGE D [Suspect]
     Indication: HYPERTENSION
     Dosage: 1 DF (160 MG VALS/5 MG AMLO/12.5MG HYDRO), DAILY
     Route: 048
     Dates: end: 201304

REACTIONS (4)
  - Fall [Recovered/Resolved]
  - Spinal fracture [Recovered/Resolved]
  - Injury [Recovered/Resolved]
  - Gait disturbance [Recovered/Resolved]
